FAERS Safety Report 21536069 (Version 1)
Quarter: 2022Q4

REPORT INFORMATION
  Report Type: Spontaneous
  Country: US (occurrence: None)
  Receive Date: 20221031
  Receipt Date: 20221031
  Transmission Date: 20230113
  Serious: Yes (Hospitalization)
  Sender: FDA-Public Use
  Company Number: None

PATIENT
  Sex: Male

DRUGS (1)
  1. COPAXONE [Suspect]
     Active Substance: GLATIRAMER ACETATE
     Indication: Multiple sclerosis
     Dosage: FREQUENCY : 3 TIMES A WEEK;?
     Route: 058
     Dates: start: 20150122

REACTIONS (7)
  - Vomiting [None]
  - Fall [None]
  - Tremor [None]
  - Tooth fracture [None]
  - Speech disorder [None]
  - Gait disturbance [None]
  - Spinal osteoarthritis [None]
